FAERS Safety Report 8774228 (Version 1)
Quarter: 2012Q4

REPORT INFORMATION
  Report Type: 
  Country: US (occurrence: US)
  Receive Date: 20120907
  Receipt Date: 20120907
  Transmission Date: 20130627
  Serious: Yes (Other)
  Sender: FDA-Public Use
  Company Number: US-PFIZER INC-2012218662

PATIENT
  Age: 60 Year
  Sex: Female

DRUGS (9)
  1. LYRICA [Suspect]
     Indication: FIBROMYALGIA
     Dosage: UNK
  2. LEVOTHYROXINE SODIUM [Suspect]
     Indication: HYPOTHYROIDISM
     Dosage: UNK
  3. PROPRANOLOL [Suspect]
     Indication: BLOOD PRESSURE ABNORMAL
     Dosage: UNK
  4. WELLBUTRIN [Suspect]
     Indication: DEPRESSION
     Dosage: UNK
  5. PAROXETINE [Suspect]
     Indication: DEPRESSION
     Dosage: UNK
  6. TRAZODONE [Suspect]
     Indication: DEPRESSION
     Dosage: before bed
  7. ALBUTEROL SULFATE [Suspect]
     Indication: HYPERSENSITIVITY
     Dosage: in the morning and at night
  8. OMEPRAZOLE [Suspect]
     Indication: ABDOMINAL DISCOMFORT
     Dosage: UNK
  9. FIORICET [Suspect]
     Indication: MIGRAINE
     Dosage: UNK

REACTIONS (4)
  - Liposarcoma [Unknown]
  - Lipoma [Unknown]
  - Blood cholesterol increased [Unknown]
  - Alopecia [Unknown]
